FAERS Safety Report 5381598-6 (Version None)
Quarter: 2007Q2

REPORT INFORMATION
  Report Type: 
  Country: None (occurrence: None)
  Receive Date: 20070629
  Receipt Date: 20070220
  Transmission Date: 20071010
  Serious: Yes (Other)
  Sender: FDA-Public Use
  Company Number: 2007013784

PATIENT
  Age: 59 Year
  Sex: Female

DRUGS (1)
  1. ZOLOFT [Suspect]
     Dosage: 62.5 MG (62.5 MG, 1 IN 1 D);
     Dates: start: 19970101

REACTIONS (4)
  - INSOMNIA [None]
  - PANIC ATTACK [None]
  - TACHYCARDIA [None]
  - VERTIGO [None]
